FAERS Safety Report 6545969-4 (Version None)
Quarter: 2010Q1

REPORT INFORMATION
  Report Type: 
  Country: None (occurrence: None)
  Receive Date: 20100121
  Receipt Date: 20100121
  Transmission Date: 20100710
  Serious: Yes (Life-Threatening, Hospitalization)
  Sender: FDA-Public Use
  Company Number: None

PATIENT
  Age: 73 Year
  Sex: Female
  Weight: 86.1834 kg

DRUGS (2)
  1. TYLENOL [Suspect]
     Indication: POSTOPERATIVE CARE
     Dosage: 2 CAPLETS TWICE DAILY PO
     Route: 048
     Dates: start: 20091219, end: 20100107
  2. TYLENOL [Suspect]
     Indication: UPPER LIMB FRACTURE
     Dosage: 2 CAPLETS TWICE DAILY PO
     Route: 048
     Dates: start: 20091219, end: 20100107

REACTIONS (2)
  - INTESTINAL PERFORATION [None]
  - PRODUCT QUALITY ISSUE [None]
